FAERS Safety Report 4631230-1 (Version None)
Quarter: 2005Q2

REPORT INFORMATION
  Report Type: 
  Country: None (occurrence: None)
  Receive Date: 20050407
  Receipt Date: 20050407
  Transmission Date: 20051028
  Serious: Yes (Other)
  Sender: FDA-Public Use
  Company Number: None

PATIENT
  Sex: Male

DRUGS (1)
  1. CARBAMAZEPINE [Suspect]
     Dosage: 200 MG
     Dates: start: 20041201

REACTIONS (3)
  - AGITATION [None]
  - DRUG EFFECT DECREASED [None]
  - ELEVATED MOOD [None]
